FAERS Safety Report 16275645 (Version 1)
Quarter: 2019Q2

REPORT INFORMATION
  Report Type: Spontaneous
  Country: GB (occurrence: US)
  Receive Date: 20190330
  Receipt Date: 20190330
  Transmission Date: 20190711
  Serious: No
  Sender: FDA-Public Use
  Company Number: None

PATIENT
  Age: 57 Year
  Sex: Female
  Weight: 102.35 kg

DRUGS (1)
  1. DOXIL [Suspect]
     Active Substance: DOXORUBICIN HYDROCHLORIDE
     Dates: end: 20181213

REACTIONS (6)
  - Staphylococcal infection [None]
  - Hypophagia [None]
  - Injection site erythema [None]
  - Tenderness [None]
  - Nausea [None]
  - Drain site complication [None]

NARRATIVE: CASE EVENT DATE: 20190101
